FAERS Safety Report 9940956 (Version 1)
Quarter: 2014Q1

REPORT INFORMATION
  Report Type: Spontaneous
  Country: GB (occurrence: GB)
  Receive Date: 20140303
  Receipt Date: 20140303
  Transmission Date: 20141002
  Serious: Yes (Hospitalization)
  Sender: FDA-Public Use
  Company Number: GB-BRISTOL-MYERS SQUIBB COMPANY-20357554

PATIENT
  Age: 73 Year
  Sex: Male

DRUGS (6)
  1. METFORMIN HCL [Suspect]
     Route: 048
     Dates: start: 20140120, end: 20140202
  2. ASPIRIN [Concomitant]
     Indication: ANTICOAGULANT THERAPY
  3. BISOPROLOL [Concomitant]
     Indication: CARDIAC DISORDER
  4. RAMIPRIL [Concomitant]
     Indication: HYPERTENSION
  5. SIMVASTATIN [Concomitant]
     Indication: HYPERCHOLESTEROLAEMIA
  6. TAMSULOSIN [Concomitant]
     Indication: URINARY TRACT DISORDER

REACTIONS (1)
  - Erythema multiforme [Recovering/Resolving]
